FAERS Safety Report 24556628 (Version 1)
Quarter: 2024Q4

REPORT INFORMATION
  Report Type: Spontaneous
  Country: CA (occurrence: CA)
  Receive Date: 20241028
  Receipt Date: 20241028
  Transmission Date: 20250115
  Serious: Yes (Other)
  Sender: BAUSCH AND LOMB
  Company Number: CA-BAUSCH-BL-2024-015717

PATIENT
  Age: 59 Year
  Sex: Male

DRUGS (1)
  1. ALBUTEROL SULFATE [Suspect]
     Active Substance: ALBUTEROL SULFATE
     Indication: Product used for unknown indication
     Route: 065

REACTIONS (11)
  - Dyspnoea [Unknown]
  - Dyspnoea exertional [Unknown]
  - Productive cough [Unknown]
  - Increased bronchial secretion [Unknown]
  - Pulmonary congestion [Unknown]
  - Wheezing [Unknown]
  - Cough [Unknown]
  - Asthenia [Unknown]
  - Chest discomfort [Unknown]
  - Respiratory symptom [Unknown]
  - Middle insomnia [Unknown]
